FAERS Safety Report 9555037 (Version 1)
Quarter: 2013Q3

REPORT INFORMATION
  Report Type: Spontaneous
  Country: US (occurrence: None)
  Receive Date: 20130925
  Receipt Date: 20130925
  Transmission Date: 20140515
  Serious: No
  Sender: FDA-Public Use
  Company Number: None

PATIENT
  Age: 63 Year
  Sex: Female

DRUGS (1)
  1. SUTENT [Suspect]
     Dosage: QDX28DAYS, 14 DAY OFF
     Route: 048
     Dates: start: 201209

REACTIONS (1)
  - Hypoaesthesia [None]
